FAERS Safety Report 8473094-4 (Version None)
Quarter: 2012Q2

REPORT INFORMATION
  Report Type: 
  Country: None (occurrence: None)
  Receive Date: 20120627
  Receipt Date: 20120619
  Transmission Date: 20120825
  Serious: Yes (Hospitalization)
  Sender: FDA-Public Use
  Company Number: JP-ROCHE-1078660

PATIENT
  Sex: Male
  Weight: 61 kg

DRUGS (24)
  1. DOXAZOSIN MESYLATE [Concomitant]
     Route: 048
     Dates: start: 20111124, end: 20120524
  2. ALLOPURINOL [Concomitant]
     Route: 048
     Dates: end: 20120524
  3. FAMOTIDINE [Concomitant]
     Route: 048
     Dates: end: 20120524
  4. CALCIUM CARBONATE [Concomitant]
     Route: 048
     Dates: end: 20120524
  5. COMELIAN [Concomitant]
     Route: 048
     Dates: end: 20120517
  6. PREDNISOLONE [Concomitant]
     Route: 048
     Dates: start: 20090709, end: 20111127
  7. PREDNISOLONE [Concomitant]
     Route: 048
  8. METHYLPREDNISOLONE SODIUM SUCCINATE [Concomitant]
     Indication: NEPHROTIC SYNDROME
     Route: 041
     Dates: start: 20111128, end: 20111128
  9. MICARDIS [Concomitant]
     Route: 048
     Dates: start: 20120202, end: 20120517
  10. PREDNISOLONE [Concomitant]
     Indication: NEPHROTIC SYNDROME
     Route: 048
     Dates: start: 20090211
  11. METHYLPREDNISOLONE SODIUM SUCCINATE [Concomitant]
     Route: 041
     Dates: start: 20111201, end: 20111202
  12. CLARITHROMYCIN [Suspect]
     Indication: NASOPHARYNGITIS
     Route: 048
     Dates: start: 20120305, end: 20120315
  13. ASPIRIN [Concomitant]
     Route: 048
     Dates: end: 20120517
  14. ZESULAN [Concomitant]
     Route: 048
     Dates: start: 20120305, end: 20120315
  15. MIRCERA [Suspect]
     Indication: NEPHROGENIC ANAEMIA
     Dosage: ONCE/4-6 WEEKS
     Route: 058
     Dates: start: 20111124, end: 20120517
  16. PREDNISOLONE [Concomitant]
     Route: 048
     Dates: start: 20111202
  17. BAKTAR [Concomitant]
     Dosage: MONEY AT MONDAY AND WEDNESDAY
     Route: 048
     Dates: start: 20111216, end: 20120229
  18. ALFAROL [Concomitant]
     Route: 048
     Dates: end: 20120524
  19. LIPITOR [Concomitant]
     Route: 048
     Dates: start: 20111223, end: 20120524
  20. MUCOSOLVAN [Concomitant]
     Route: 048
     Dates: start: 20120305, end: 20120315
  21. MICARDIS [Concomitant]
     Route: 048
     Dates: start: 20111027, end: 20120201
  22. FOSAMAX [Concomitant]
     Route: 048
     Dates: start: 20111224, end: 20120331
  23. THEO-DUR [Concomitant]
     Route: 048
     Dates: end: 20120524
  24. PREDNISOLONE [Concomitant]
     Route: 048
     Dates: start: 20111128, end: 20111201

REACTIONS (2)
  - ANAEMIA [None]
  - NASOPHARYNGITIS [None]
